FAERS Safety Report 6341873-5 (Version None)
Quarter: 2009Q3

REPORT INFORMATION
  Report Type: 
  Country: None (occurrence: None)
  Receive Date: 20090904
  Receipt Date: 20090827
  Transmission Date: 20100115
  Serious: Yes (Other)
  Sender: FDA-Public Use
  Company Number: EG-AMGEN-UK361858

PATIENT
  Age: 54 Year
  Sex: Female
  Weight: 86 kg

DRUGS (2)
  1. NPLATE [Suspect]
     Indication: IDIOPATHIC THROMBOCYTOPENIC PURPURA
     Route: 058
  2. SANDIMMUNE [Concomitant]

REACTIONS (2)
  - DRUG EFFECT DECREASED [None]
  - FATIGUE [None]
